FAERS Safety Report 7708848-2 (Version None)
Quarter: 2011Q3

REPORT INFORMATION
  Report Type: 
  Country: None (occurrence: None)
  Receive Date: 20110819
  Receipt Date: 20110816
  Transmission Date: 20111222
  Serious: Yes (Death)
  Sender: FDA-Public Use
  Company Number: TRP_07897_2011

PATIENT
  Age: 34 Year
  Sex: Male

DRUGS (3)
  1. VORICONAZOLE [Suspect]
     Indication: ASPERGILLOSIS
     Dosage: (DF)
  2. AMPHOTERICIN B [Suspect]
     Indication: ASPERGILLOSIS
     Dosage: (DF), (0.3 MG QD)
  3. CASPOFUNGIN ACETATE [Suspect]
     Indication: ASPERGILLOSIS
     Dosage: (DF)

REACTIONS (7)
  - OPERATIVE HAEMORRHAGE [None]
  - LEUKAEMIA RECURRENT [None]
  - CEREBRAL ASPERGILLOSIS [None]
  - DYSARTHRIA [None]
  - HEMIPLEGIA [None]
  - CENTRAL NERVOUS SYSTEM LESION [None]
  - DISEASE PROGRESSION [None]
